FAERS Safety Report 9731813 (Version 1)
Quarter: 2013Q4

REPORT INFORMATION
  Report Type: Spontaneous
  Country: US (occurrence: None)
  Receive Date: 20131204
  Receipt Date: 20131204
  Transmission Date: 20140711
  Serious: No
  Sender: FDA-Public Use
  Company Number: None

PATIENT
  Age: 14 Year
  Sex: Female
  Weight: 52.16 kg

DRUGS (2)
  1. QUETIAPINE FUMARATE 25MG TABLETS [Suspect]
     Indication: DEPRESSION
     Dosage: 25 MG 2 TABS H.S. PO
     Route: 048
     Dates: start: 201307, end: 20131119
  2. QUETIAPINE FUMARATE 25MG TABLETS [Suspect]
     Indication: SUICIDAL IDEATION
     Dosage: 25 MG 2 TABS H.S. PO
     Route: 048
     Dates: start: 201307, end: 20131119

REACTIONS (11)
  - Dizziness [None]
  - Vision blurred [None]
  - Headache [None]
  - Mydriasis [None]
  - Somnolence [None]
  - Dizziness [None]
  - Presyncope [None]
  - Loss of consciousness [None]
  - Dizziness [None]
  - Visual impairment [None]
  - Feeling abnormal [None]
